FAERS Safety Report 25225141 (Version 2)
Quarter: 2025Q2

REPORT INFORMATION
  Report Type: Spontaneous
  Country: US (occurrence: US)
  Receive Date: 20250422
  Receipt Date: 20250524
  Transmission Date: 20250717
  Serious: Yes (Other)
  Sender: AUROBINDO
  Company Number: US-AUROBINDO-AUR-APL-2025-021697

PATIENT
  Age: 60 Year
  Sex: Male

DRUGS (6)
  1. WARFARIN [Suspect]
     Active Substance: WARFARIN
     Indication: Atrial fibrillation
     Route: 065
  2. WARFARIN [Suspect]
     Active Substance: WARFARIN
     Indication: Cardiac ventricular thrombosis
  3. APIXABAN [Suspect]
     Active Substance: APIXABAN
     Indication: Atrial fibrillation
     Route: 065
  4. APIXABAN [Suspect]
     Active Substance: APIXABAN
     Indication: Cardiac ventricular thrombosis
  5. DABIGATRAN ETEXILATE [Suspect]
     Active Substance: DABIGATRAN ETEXILATE
     Indication: Atrial fibrillation
     Route: 065
  6. DABIGATRAN ETEXILATE [Suspect]
     Active Substance: DABIGATRAN ETEXILATE
     Indication: Cardiac ventricular thrombosis

REACTIONS (1)
  - Drug ineffective [Unknown]
